FAERS Safety Report 9156757 (Version 1)
Quarter: 2013Q1

REPORT INFORMATION
  Report Type: Spontaneous
  Country: IT (occurrence: IT)
  Receive Date: 20130312
  Receipt Date: 20130312
  Transmission Date: 20140127
  Serious: Yes (Disabling)
  Sender: FDA-Public Use
  Company Number: IT-RANBAXY-2013R1-65874

PATIENT
  Age: 70 Year
  Sex: Female

DRUGS (1)
  1. CARVEDILOL [Suspect]
     Indication: PRODUCT USED FOR UNKNOWN INDICATION
     Dosage: UNK
     Route: 065

REACTIONS (3)
  - Lacrimation decreased [Not Recovered/Not Resolved]
  - Rhinitis atrophic [Not Recovered/Not Resolved]
  - Vitreous detachment [Not Recovered/Not Resolved]
